FAERS Safety Report 5728205-8 (Version None)
Quarter: 2008Q2

REPORT INFORMATION
  Report Type: 
  Country: None (occurrence: None)
  Receive Date: 20080506
  Receipt Date: 20080429
  Transmission Date: 20081010
  Serious: Yes (Other)
  Sender: FDA-Public Use
  Company Number: GB-RANBAXY-2008RR-14758

PATIENT

DRUGS (4)
  1. PRAVASTATIN SODIUM 10 MG TABLETS [Suspect]
     Dosage: 10 MG, UNK
     Route: 048
  2. PRAVASTATIN SODIUM 10 MG TABLETS [Suspect]
     Dosage: 20 MG, UNK
     Route: 048
  3. ASPIRIN [Concomitant]
     Dosage: UNK
     Dates: start: 20060501
  4. ERYTHROMYCIN [Concomitant]
     Dosage: UNK

REACTIONS (1)
  - TRANSIENT ISCHAEMIC ATTACK [None]
